FAERS Safety Report 6715472-7 (Version None)
Quarter: 2010Q2

REPORT INFORMATION
  Report Type: 
  Country: None (occurrence: None)
  Receive Date: 20100507
  Receipt Date: 20100423
  Transmission Date: 20101027
  Serious: Yes (Other)
  Sender: FDA-Public Use
  Company Number: PHEH2007US12652

PATIENT
  Sex: Female

DRUGS (42)
  1. ZOMETA [Suspect]
     Indication: MULTIPLE MYELOMA
     Dosage: 4 MG, QMO
     Route: 042
     Dates: start: 20060101, end: 20061001
  2. TAXOTERE [Concomitant]
     Dosage: 160 MG, UNK
     Dates: start: 20040501, end: 20050901
  3. XELODA [Concomitant]
     Dosage: 1950 MG, BID
     Dates: start: 20051101
  4. ATIVAN [Concomitant]
  5. VICODIN [Concomitant]
  6. AMBIEN [Concomitant]
     Indication: INSOMNIA
     Dosage: 5 MG / EVERY NIGHT AT BEDTIME
     Route: 048
  7. LEVOTHYROXINE SODIUM [Concomitant]
  8. ACIPHEX [Concomitant]
  9. ZOLOFT [Concomitant]
     Dosage: UNK
  10. ASPIRIN [Concomitant]
  11. AMPICILLIN [Concomitant]
     Dosage: 875MG BID X + DAYS
  12. RADIATION [Concomitant]
  13. ABRAXANE [Concomitant]
     Dosage: WEEKLY
  14. AVASTIN [Concomitant]
  15. NORCO [Concomitant]
  16. CYMBALTA [Concomitant]
  17. CEFTRIAXONE [Concomitant]
     Dosage: UNK
  18. DILAUDID [Concomitant]
     Indication: PAIN
     Dosage: 2 MG
     Route: 048
  19. PERCOCET [Concomitant]
     Dosage: UNK
  20. CAPECITABINE [Concomitant]
     Dosage: UNK
  21. SYNTHROID [Concomitant]
     Dosage: 0.05 MG  / QD
  22. RITALIN [Concomitant]
     Dosage: 2.5 MG / DAILY
  23. FENTANYL [Concomitant]
     Dosage: UNK
     Route: 062
  24. HYDROCODONE BITARTRATE AND ACETAMINOPHEN [Concomitant]
     Dosage: 10 MG/325 MG / ONE TABLE EVERY 6 HRS
     Route: 048
  25. CEPHALEXIN [Concomitant]
     Dosage: 500 MG / 4 X DAILY
     Route: 048
  26. VANCOMYCIN [Concomitant]
     Dosage: UNK
  27. NAPROSYN [Concomitant]
     Dosage: UNK
  28. KEFLEX [Concomitant]
     Dosage: 500 MG, UNK
  29. ARANESP [Concomitant]
     Dosage: 200 MCG
  30. VANCOMYCIN HCL [Concomitant]
     Dosage: 250 MG /TWICE WEEKLY
     Route: 048
  31. PROVIGIL [Concomitant]
     Dosage: 100 MG / DAILY
     Route: 048
  32. CIPROFLOXACIN [Concomitant]
     Dosage: 205 MG / EVERY 12 HRS
     Route: 048
  33. ZOFRAN [Concomitant]
     Dosage: 9 MG / PRN
  34. COLACE [Concomitant]
     Dosage: UNK
  35. LORAZEPAM [Concomitant]
     Dosage: 1 MG / PRN
  36. DOXIL [Concomitant]
     Dosage: UNK
  37. NIACIN [Concomitant]
     Dosage: UNK
  38. RELAFEN [Concomitant]
     Dosage: 500 MG / BID
  39. FEMARA [Concomitant]
     Dosage: UNK
  40. NEULASTA [Concomitant]
  41. DEXAMETHASONE [Concomitant]
     Dosage: 8 MG, EVERY THREE WEEKS
  42. LASIX [Concomitant]
     Dosage: 10 MG, UNK

REACTIONS (46)
  - ACANTHOLYSIS [None]
  - ANHEDONIA [None]
  - ANXIETY [None]
  - ARTHRALGIA [None]
  - BACK PAIN [None]
  - BONE PAIN [None]
  - BREAST CANCER METASTATIC [None]
  - BREAST OPERATION [None]
  - CHEST PAIN [None]
  - CYST [None]
  - DEFORMITY [None]
  - DENTAL CARIES [None]
  - DISCOMFORT [None]
  - EMOTIONAL DISTRESS [None]
  - ENDODONTIC PROCEDURE [None]
  - EPISTAXIS [None]
  - EYE PAIN [None]
  - FIBROMYALGIA [None]
  - GINGIVAL BLEEDING [None]
  - GINGIVITIS [None]
  - HIGH FREQUENCY ABLATION [None]
  - HYPOPHAGIA [None]
  - IMPETIGO [None]
  - INJURY [None]
  - INTERVERTEBRAL DISC DISORDER [None]
  - JOINT STIFFNESS [None]
  - METASTASES TO LIVER [None]
  - METASTASES TO LUNG [None]
  - METASTASES TO SPINE [None]
  - NASAL DISORDER [None]
  - OEDEMA [None]
  - ORAL PAIN [None]
  - OSTEONECROSIS OF JAW [None]
  - OSTEOSCLEROSIS [None]
  - PAIN [None]
  - PYREXIA [None]
  - RHINORRHOEA [None]
  - SOMNOLENCE [None]
  - STOMATITIS [None]
  - THROAT IRRITATION [None]
  - TOOTH ABSCESS [None]
  - TOOTH DISORDER [None]
  - TOOTH FRACTURE [None]
  - TOOTH INFECTION [None]
  - TOOTH REPAIR [None]
  - TOOTHACHE [None]
